FAERS Safety Report 8865810 (Version 1)
Quarter: 2012Q4

REPORT INFORMATION
  Report Type: 
  Country: US (occurrence: US)
  Receive Date: 20121024
  Receipt Date: 20121024
  Transmission Date: 20130627
  Serious: No
  Sender: FDA-Public Use
  Company Number: US-AMGEN-USASP2011062419

PATIENT
  Sex: Female
  Weight: 244 kg

DRUGS (2)
  1. ENBREL [Suspect]
     Indication: PSORIATIC ARTHROPATHY
     Dosage: 50 mg, qwk
     Dates: start: 200711, end: 201104
  2. THYROID THERAPY [Concomitant]

REACTIONS (3)
  - Arthralgia [Recovered/Resolved]
  - Swelling [Recovered/Resolved]
  - Therapeutic response decreased [Recovered/Resolved]
